FAERS Safety Report 5351630-4 (Version None)
Quarter: 2007Q2

REPORT INFORMATION
  Report Type: 
  Country: None (occurrence: None)
  Receive Date: 20070523
  Receipt Date: 20060510
  Transmission Date: 20071010
  Serious: Yes (Hospitalization)
  Sender: FDA-Public Use
  Company Number: US-JNJFOC-20060502806

PATIENT
  Age: 32 Year
  Sex: Female

DRUGS (1)
  1. SPORANOX [Suspect]
     Indication: PSORIASIS
     Dates: start: 19960101, end: 19960101

REACTIONS (2)
  - PYREXIA [None]
  - SKIN EXFOLIATION [None]
